FAERS Safety Report 19728429 (Version 1)
Quarter: 2021Q3

REPORT INFORMATION
  Report Type: Not Available
  Country: None (occurrence: None)
  Receive Date: 20210820
  Receipt Date: 20210820
  Transmission Date: 20211014
  Serious: No
  Sender: FDA-Public Use
  Company Number: US-AKORN-170246

PATIENT
  Age: 75 Year
  Sex: Female

DRUGS (1)
  1. CLOBETASOL PROPIONATE TOPICAL SOLUTION, USP, 0.05% [Suspect]
     Active Substance: CLOBETASOL PROPIONATE

REACTIONS (2)
  - Expired product administered [Not Recovered/Not Resolved]
  - Alopecia [Not Recovered/Not Resolved]
